FAERS Safety Report 6399373-2 (Version None)
Quarter: 2009Q4

REPORT INFORMATION
  Report Type: 
  Country: None (occurrence: None)
  Receive Date: 20091007
  Receipt Date: 20091007
  Transmission Date: 20100525
  Serious: Yes (Disabling, Other)
  Sender: FDA-Public Use
  Company Number: None

PATIENT
  Age: 44 Year
  Sex: Female
  Weight: 90.9 kg

DRUGS (8)
  1. CHANTIX [Suspect]
     Indication: NICOTINE DEPENDENCE
     Dosage: CHANTIX 1MG BID PO
     Route: 048
     Dates: start: 20090827, end: 20090914
  2. GEODON [Concomitant]
  3. DEPAKOTE [Concomitant]
  4. ALPRAZOLAM [Concomitant]
  5. AMTRIPTYLINE [Concomitant]
  6. LAMICTAL [Concomitant]
  7. NORTRIPTYLINE [Concomitant]
  8. FOLIC ACID [Concomitant]

REACTIONS (6)
  - CONFUSIONAL STATE [None]
  - DISORIENTATION [None]
  - DISTURBANCE IN ATTENTION [None]
  - TINNITUS [None]
  - TREMOR [None]
  - URINARY TRACT DISORDER [None]
